FAERS Safety Report 6164441-7 (Version None)
Quarter: 2009Q2

REPORT INFORMATION
  Report Type: 
  Country: None (occurrence: None)
  Receive Date: 20090421
  Receipt Date: 20090413
  Transmission Date: 20091009
  Serious: Yes (Other)
  Sender: FDA-Public Use
  Company Number: 2009AL002142

PATIENT
  Age: 38 Year
  Sex: Male
  Weight: 149.687 kg

DRUGS (8)
  1. BUPROPION HCL [Suspect]
     Indication: DEPRESSION
     Dosage: 150 MG; QD; PO
     Route: 048
  2. GLIMEPIRIDE [Concomitant]
  3. ATORVASTATIN [Concomitant]
  4. LISINOPRIL [Concomitant]
  5. ACETYLSALICYLIC ACID [Concomitant]
  6. OMEPRAZOLE [Concomitant]
  7. IBUPROFEN [Concomitant]
  8. COLCHICINE [Concomitant]

REACTIONS (8)
  - CONDITION AGGRAVATED [None]
  - CONSTIPATION [None]
  - DIARRHOEA [None]
  - DRUG INEFFECTIVE [None]
  - GOUT [None]
  - HAEMORRHAGE [None]
  - HAEMORRHOIDS [None]
  - PROCTALGIA [None]
